FAERS Safety Report 9147252 (Version 2)
Quarter: 2013Q1

REPORT INFORMATION
  Report Type: Spontaneous
  Country: AT (occurrence: AT)
  Receive Date: 20130307
  Receipt Date: 20130311
  Transmission Date: 20140127
  Serious: Yes (Death)
  Sender: FDA-Public Use
  Company Number: AT-ROCHE-1198809

PATIENT
  Age: 57 Year
  Sex: Male
  Weight: 72 kg

DRUGS (5)
  1. ZELBORAF [Suspect]
     Indication: MALIGNANT MELANOMA
     Route: 065
     Dates: end: 20130227
  2. RAMIPRIL [Concomitant]
     Indication: HYPERTENSION
     Route: 065
  3. PANTOLOC [Concomitant]
     Indication: GASTRITIS
     Route: 065
  4. AUGMENTIN [Concomitant]
     Indication: FEBRILE INFECTION
     Route: 042
     Dates: start: 20130225
  5. IMIPENEM [Concomitant]
     Route: 042

REACTIONS (3)
  - Sepsis [Fatal]
  - Hepatic failure [Fatal]
  - Renal failure [Fatal]
